FAERS Safety Report 8508264-X (Version None)
Quarter: 2012Q3

REPORT INFORMATION
  Report Type: 
  Country: None (occurrence: None)
  Receive Date: 20120713
  Receipt Date: 20120703
  Transmission Date: 20120928
  Serious: Yes (Hospitalization)
  Sender: FDA-Public Use
  Company Number: US-ABBOTT-12P-163-0952672-00

PATIENT
  Sex: Female
  Weight: 89.892 kg

DRUGS (6)
  1. HUMIRA [Suspect]
     Dates: start: 20120702
  2. LISINOPRIL [Concomitant]
     Indication: PRODUCT USED FOR UNKNOWN INDICATION
  3. SPIRONOLACTONE [Concomitant]
     Indication: PRODUCT USED FOR UNKNOWN INDICATION
  4. OXYCODONE HCL [Concomitant]
     Indication: PRODUCT USED FOR UNKNOWN INDICATION
  5. HUMIRA [Suspect]
     Indication: RHEUMATOID ARTHRITIS
     Dates: start: 20030101, end: 20120303
  6. METHOTREXATE [Concomitant]
     Indication: PRODUCT USED FOR UNKNOWN INDICATION

REACTIONS (7)
  - OSTEOPOROSIS [None]
  - OEDEMA PERIPHERAL [None]
  - URINARY INCONTINENCE [None]
  - RHEUMATOID ARTHRITIS [None]
  - JOINT SWELLING [None]
  - PELVIC FRACTURE [None]
  - ARTHRALGIA [None]
